FAERS Safety Report 9026150 (Version 1)
Quarter: 2012Q4

REPORT INFORMATION
  Report Type: Spontaneous
  Country: US (occurrence: None)
  Receive Date: 20121214
  Receipt Date: 20121214
  Transmission Date: 20130627
  Serious: Yes (Other)
  Sender: FDA-Public Use
  Company Number: None

PATIENT
  Age: 18 Year
  Sex: Female
  Weight: 62.14 kg

DRUGS (1)
  1. DROSPIRENONE-ETHINYL ESTRADIOL [Suspect]
     Indication: BIRTH CONTROL
     Dosage: 0.02 mg 1 daily PO
     Dates: start: 20120827, end: 20121127

REACTIONS (1)
  - Metrorrhagia [None]
